FAERS Safety Report 20977782 (Version 8)
Quarter: 2024Q3

REPORT INFORMATION
  Report Type: Spontaneous
  Country: CA (occurrence: CA)
  Receive Date: 20220618
  Receipt Date: 20240918
  Transmission Date: 20241017
  Serious: Yes (Hospitalization, Other)
  Sender: CELLTRION
  Company Number: CA-CELLTRION INC.-2022CA009497

PATIENT

DRUGS (39)
  1. INFLECTRA [Suspect]
     Active Substance: INFLIXIMAB-DYYB
     Indication: Crohn^s disease
     Dosage: 350 MG, EVERY 8 WEEKS, INDUCTION: 0, 2, 6 THEN EVERY 8 WEEKS
     Route: 042
     Dates: start: 20190123, end: 20200206
  2. INFLECTRA [Suspect]
     Active Substance: INFLIXIMAB-DYYB
     Dosage: 5 MG/KG, EVERY 8 WEEKS
     Route: 042
     Dates: start: 20200416
  3. INFLECTRA [Suspect]
     Active Substance: INFLIXIMAB-DYYB
     Dosage: 350 MG, EVERY 8 WEEKS, INDUCTION: Q 0, 2, 6 THEN EVERY 8 WEEKS
     Route: 042
     Dates: start: 20220413
  4. INFLECTRA [Suspect]
     Active Substance: INFLIXIMAB-DYYB
     Dosage: 350 MG, EVERY 8 WEEKS, INDUCTION: Q 0, 2, 6 THEN EVERY 8 WEEKS
     Route: 042
     Dates: start: 20220608
  5. INFLECTRA [Suspect]
     Active Substance: INFLIXIMAB-DYYB
     Dosage: 350 MG, EVERY 8 WEEKS, INDUCTION: Q 0, 2, 6 THEN EVERY 8 WEEKS
     Route: 042
     Dates: start: 20220928
  6. INFLECTRA [Suspect]
     Active Substance: INFLIXIMAB-DYYB
     Dosage: 350 MG, EVERY 8 WEEKS, INDUCTION: Q 0, 2, 6 THEN EVERY 8 WEEKS
     Route: 042
     Dates: start: 20221122
  7. INFLECTRA [Suspect]
     Active Substance: INFLIXIMAB-DYYB
     Dosage: 350 MG, EVERY 8 WEEKS, INDUCTION: Q 0, 2, 6 THEN EVERY 8 WEEKS
     Route: 042
     Dates: start: 20230118, end: 20230118
  8. INFLECTRA [Suspect]
     Active Substance: INFLIXIMAB-DYYB
     Dosage: 5 MG/KG, EVERY 8 WEEKS
     Route: 042
     Dates: start: 20230517
  9. INFLECTRA [Suspect]
     Active Substance: INFLIXIMAB-DYYB
     Dosage: 5 MG/KG, EVERY 8 WEEKS
     Route: 042
     Dates: start: 20230517
  10. INFLECTRA [Suspect]
     Active Substance: INFLIXIMAB-DYYB
     Dosage: 375 MG (5MG/KG), EVERY 8 WEEKS
     Route: 042
     Dates: start: 20230720
  11. INFLECTRA [Suspect]
     Active Substance: INFLIXIMAB-DYYB
     Dosage: 5 MG/KG, EVERY 8 WEEKS
     Route: 042
     Dates: start: 20240625
  12. INFLECTRA [Suspect]
     Active Substance: INFLIXIMAB-DYYB
     Dosage: 370 MG, AFTER 7 WEEKS AND 6 DAYS (5 MG/KG, EVERY 8 WEEKS)
     Route: 042
     Dates: start: 20240819
  13. INFLECTRA [Suspect]
     Active Substance: INFLIXIMAB-DYYB
     Dosage: 370 MG, AFTER 7 WEEKS AND 6 DAYS (5 MG/KG, EVERY 8 WEEKS)
     Route: 042
     Dates: start: 20240819
  14. AMLODIPINE [Concomitant]
     Active Substance: AMLODIPINE BESYLATE
     Dosage: 5 MG
  15. ALPRAZOLAM [Concomitant]
     Active Substance: ALPRAZOLAM
     Dosage: 0.5 MG, 1 DF
  16. CANDESARTAN [Concomitant]
     Active Substance: CANDESARTAN
     Dosage: 16 MG
  17. CITALOPRAM [Concomitant]
     Active Substance: CITALOPRAM\CITALOPRAM HYDROBROMIDE
     Dosage: 1 DF
     Route: 065
     Dates: start: 201907
  18. CITALOPRAM [Concomitant]
     Active Substance: CITALOPRAM\CITALOPRAM HYDROBROMIDE
     Dosage: 20 MG
     Route: 065
     Dates: start: 201907
  19. CLONIDINE [Concomitant]
     Active Substance: CLONIDINE
     Dosage: 0.1 MG
  20. CLOTRIMAZOLE [Concomitant]
     Active Substance: CLOTRIMAZOLE
     Dosage: UNK, HYDRADERM 1% / CLORTRIMADERM
  21. CYCLOBENZAPRINE [Concomitant]
     Active Substance: CYCLOBENZAPRINE
     Dosage: 10 MG
  22. DIPHENHYDRAMINE [Concomitant]
     Active Substance: DIPHENHYDRAMINE
     Indication: Premedication
     Dosage: 25 MG
     Dates: start: 20230118, end: 20230118
  23. BETAMETHASONE DIPROPIONATE\CALCIPOTRIENE MONOHYDRATE [Concomitant]
     Active Substance: BETAMETHASONE DIPROPIONATE\CALCIPOTRIENE MONOHYDRATE
     Dosage: UNK
  24. FOLIC ACID [Concomitant]
     Active Substance: FOLIC ACID
     Dosage: 5 MG
  25. GABAPENTIN [Concomitant]
     Active Substance: GABAPENTIN
     Dosage: 600 MG
     Route: 065
  26. GABAPENTIN [Concomitant]
     Active Substance: GABAPENTIN
     Dosage: 100 MG
     Route: 065
  27. GLICLAZIDE [Concomitant]
     Active Substance: GLICLAZIDE
     Dosage: 30 MG
  28. HYDRADERM [PARAFFIN] [Concomitant]
     Dosage: UNK
  29. METHOTREXATE [Concomitant]
     Active Substance: METHOTREXATE
     Indication: Palmoplantar pustulosis
     Dosage: 1 DF, DOSAGE INFORMATION IS UNKNOWN, 2.5 MG
     Route: 065
  30. METHOTREXATE [Concomitant]
     Active Substance: METHOTREXATE
     Dosage: 2.5 MG (1DF)
     Route: 065
  31. METOPROLOL [Concomitant]
     Active Substance: METOPROLOL
     Dosage: 25 MG
  32. OZEMPIC [Concomitant]
     Active Substance: SEMAGLUTIDE
     Dosage: 0.25 MG
     Route: 058
  33. PANTOPRAZOLE SODIUM [Concomitant]
     Active Substance: PANTOPRAZOLE SODIUM
     Dosage: 40 MG
  34. PRIMIDONE [Concomitant]
     Active Substance: PRIMIDONE
     Dosage: 250 MG
  35. RANITIDINE [Concomitant]
     Active Substance: RANITIDINE
     Dosage: 150 MG
  36. ROSUVASTATIN [Concomitant]
     Active Substance: ROSUVASTATIN\ROSUVASTATIN CALCIUM
     Dosage: 5 MG
  37. TETRACYCLINE [Concomitant]
     Active Substance: TETRACYCLINE
     Dosage: 1 DF, DOSAGE INFO NOT AVAILABLE
     Route: 065
  38. CYANOCOBALAMIN [Concomitant]
     Active Substance: CYANOCOBALAMIN
     Dosage: 1200 MG
  39. CHOLECALCIFEROL [Concomitant]
     Active Substance: CHOLECALCIFEROL
     Dosage: 1000 IU

REACTIONS (9)
  - Cellulitis [Recovered/Resolved]
  - Trigeminal neuralgia [Not Recovered/Not Resolved]
  - Cataract [Recovered/Resolved with Sequelae]
  - Trigeminal nerve disorder [Recovered/Resolved with Sequelae]
  - Facial pain [Not Recovered/Not Resolved]
  - Lip ulceration [Not Recovered/Not Resolved]
  - Oral herpes [Not Recovered/Not Resolved]
  - Off label use [Unknown]
  - Intentional product use issue [Unknown]

NARRATIVE: CASE EVENT DATE: 20200201
